FAERS Safety Report 22090655 (Version 3)
Quarter: 2023Q2

REPORT INFORMATION
  Report Type: Spontaneous
  Country: US (occurrence: US)
  Receive Date: 20230313
  Receipt Date: 20230629
  Transmission Date: 20230722
  Serious: Yes (Other)
  Sender: FDA-Public Use
  Company Number: US-INCYTE CORPORATION-2023IN001741

PATIENT

DRUGS (7)
  1. OPZELURA [Suspect]
     Active Substance: RUXOLITINIB PHOSPHATE
     Indication: Vitiligo
     Dosage: 60 GRAM, BID (APPLICATION TO HANDS AND LIPS)
     Route: 061
     Dates: start: 202211, end: 20230127
  2. TACROLIMUS [Concomitant]
     Active Substance: TACROLIMUS
     Indication: Vitiligo
     Dosage: 60 GRAM, BID (0.1%, 1 APPLICATION) FOR 30 DAYS THEN 2 WEEKS AND THEN ALTERNATE WITH TRIAMCINOLONE
     Route: 061
  3. TRIAMCINOLONE ACETONIDE [Concomitant]
     Active Substance: TRIAMCINOLONE ACETONIDE
     Indication: Vitiligo
     Dosage: 80 GRAM, BID (0.1%, 1 APPLICATION) FOR 30 DAYS THEN 2 WEEKS AND THEN ALTERNATE WITH TACROLIMUS
     Route: 061
  4. HYDROCORTISONE [Concomitant]
     Active Substance: HYDROCORTISONE
     Indication: Vitiligo
     Dosage: 30 GRAM, BID (2.5%, 1 APPLICATION)
     Route: 061
  5. CLOBETASOL [Concomitant]
     Active Substance: CLOBETASOL
     Indication: Vitiligo
     Dosage: 60 GRAM, BID (1 APPLICATION)
     Route: 061
  6. ATORVASTATIN [Concomitant]
     Active Substance: ATORVASTATIN
     Indication: Product used for unknown indication
     Route: 065
  7. VITAMINS NOS [Concomitant]
     Active Substance: VITAMINS
     Indication: Product used for unknown indication
     Route: 065

REACTIONS (20)
  - Sjogren^s syndrome [Unknown]
  - Antinuclear antibody positive [Recovering/Resolving]
  - Pharyngitis [Recovering/Resolving]
  - Pain in extremity [Recovering/Resolving]
  - Dry mouth [Recovering/Resolving]
  - Rash [Recovering/Resolving]
  - Drug hypersensitivity [Unknown]
  - Feeling cold [Recovering/Resolving]
  - Throat irritation [Recovering/Resolving]
  - Globulins increased [Unknown]
  - Myalgia [Unknown]
  - Haematuria [Unknown]
  - Dysstasia [Unknown]
  - Dysuria [Unknown]
  - Vitamin D deficiency [Unknown]
  - Vitamin B12 deficiency [Unknown]
  - Influenza like illness [Recovered/Resolved]
  - Herpes zoster [Recovered/Resolved]
  - Urticaria [Unknown]
  - Eosinophil count increased [Unknown]

NARRATIVE: CASE EVENT DATE: 20230106
